FAERS Safety Report 8184356-2 (Version None)
Quarter: 2012Q1

REPORT INFORMATION
  Report Type: 
  Country: None (occurrence: None)
  Receive Date: 20120305
  Receipt Date: 20120221
  Transmission Date: 20120608
  Serious: Yes (Other)
  Sender: FDA-Public Use
  Company Number: BE-ELI_LILLY_AND_COMPANY-BE201202007139

PATIENT
  Age: 12 Year
  Sex: Male
  Weight: 40 kg

DRUGS (1)
  1. STRATTERA [Suspect]
     Dosage: 60 MG, EACH MORNING

REACTIONS (9)
  - NIGHTMARE [None]
  - WEIGHT GAIN POOR [None]
  - ARRHYTHMIA [None]
  - ANXIETY [None]
  - APATHY [None]
  - OVERDOSE [None]
  - NAUSEA [None]
  - HYPERHIDROSIS [None]
  - IRRITABILITY [None]
